FAERS Safety Report 6431201-9 (Version None)
Quarter: 2009Q4

REPORT INFORMATION
  Report Type: 
  Country: None (occurrence: None)
  Receive Date: 20091106
  Receipt Date: 20091027
  Transmission Date: 20100525
  Serious: Yes (Other)
  Sender: FDA-Public Use
  Company Number: US-GENENTECH-287040

PATIENT
  Sex: Female

DRUGS (8)
  1. AVASTIN [Suspect]
     Indication: BREAST CANCER METASTATIC
     Dosage: 7.5 MG/KG, Q2W
     Route: 042
     Dates: start: 20081014
  2. AVASTIN [Suspect]
     Dosage: 10 MG/KG, Q3W
     Route: 042
     Dates: end: 20090701
  3. HERCEPTIN [Suspect]
     Indication: BREAST CANCER METASTATIC
     Dosage: 336 MG, UNK
     Route: 042
     Dates: start: 20060101
  4. HERCEPTIN [Suspect]
     Dosage: UNK
     Dates: start: 20080101, end: 20090512
  5. HERCEPTIN [Suspect]
     Dosage: UNK
     Dates: start: 20090701
  6. GEMZAR [Concomitant]
     Indication: BREAST CANCER METASTATIC
     Dosage: UNK
     Dates: end: 20080717
  7. ALOXI [Concomitant]
     Indication: DRUG USE FOR UNKNOWN INDICATION
  8. BENADRYL [Concomitant]
     Indication: DRUG USE FOR UNKNOWN INDICATION

REACTIONS (4)
  - ALOPECIA [None]
  - CONVULSION [None]
  - DISEASE PROGRESSION [None]
  - DRUG INEFFECTIVE [None]
